FAERS Safety Report 14773271 (Version 1)
Quarter: 2018Q2

REPORT INFORMATION
  Report Type: Spontaneous
  Country: US (occurrence: US)
  Receive Date: 20180418
  Receipt Date: 20180418
  Transmission Date: 20180711
  Serious: No
  Sender: FDA-Public Use
  Company Number: US-TEVA-772465ACC

PATIENT
  Sex: Female

DRUGS (1)
  1. ESCITALOPRAM [Suspect]
     Active Substance: ESCITALOPRAM OXALATE
     Indication: DEPRESSION
     Route: 065

REACTIONS (8)
  - Paraesthesia [Unknown]
  - Stress [Unknown]
  - Withdrawal syndrome [Unknown]
  - Agitation [Unknown]
  - Intentional product misuse [Unknown]
  - Depression [Unknown]
  - Anxiety [Unknown]
  - Drug prescribing error [Unknown]
